FAERS Safety Report 5150563-6 (Version None)
Quarter: 2006Q4

REPORT INFORMATION
  Report Type: 
  Country: None (occurrence: None)
  Receive Date: 20061114
  Receipt Date: 20061025
  Transmission Date: 20070319
  Serious: Yes (Hospitalization, Other)
  Sender: FDA-Public Use
  Company Number: PHBS2006JP16820

PATIENT
  Age: 57 Year
  Sex: Male

DRUGS (2)
  1. CYCLOSPORINE [Suspect]
     Indication: RENAL TRANSPLANT
     Route: 065
  2. STEROIDS NOS [Suspect]

REACTIONS (15)
  - BLOOD ALDOSTERONE INCREASED [None]
  - BLOOD CHOLESTEROL INCREASED [None]
  - BLOOD GLUCOSE INCREASED [None]
  - BLOOD TRIGLYCERIDES INCREASED [None]
  - BLOOD UREA INCREASED [None]
  - DIABETES MELLITUS [None]
  - GLUCOSE URINE [None]
  - GLYCOSYLATED HAEMOGLOBIN INCREASED [None]
  - HYPERTENSION [None]
  - KIDNEY ABLATION [None]
  - OEDEMA PERIPHERAL [None]
  - PROTEINURIA [None]
  - RENAL ATROPHY [None]
  - RENIN INCREASED [None]
  - VASCULAR GRAFT COMPLICATION [None]
